FAERS Safety Report 25601414 (Version 1)
Quarter: 2025Q3

REPORT INFORMATION
  Report Type: Spontaneous
  Country: GB (occurrence: GB)
  Receive Date: 20250724
  Receipt Date: 20250724
  Transmission Date: 20251020
  Serious: Yes (Other)
  Sender: AUROBINDO
  Company Number: GB-MHRA-TPP11806156C29799938YC1752236218995

PATIENT
  Age: 67 Year
  Sex: Female
  Weight: 92 kg

DRUGS (19)
  1. AMOXICILLIN\CLAVULANIC ACID [Suspect]
     Active Substance: AMOXICILLIN\CLAVULANIC ACID
     Indication: Ill-defined disorder
     Route: 065
     Dates: start: 20250610
  2. COCODAMOL [Concomitant]
     Active Substance: ACETAMINOPHEN\CODEINE PHOSPHATE
     Indication: Ill-defined disorder
     Route: 065
     Dates: start: 20250604
  3. METRONIDAZOLE [Concomitant]
     Active Substance: METRONIDAZOLE
     Indication: Ill-defined disorder
     Route: 065
     Dates: start: 20250613
  4. Trimethoprim arrow [Concomitant]
     Indication: Ill-defined disorder
     Route: 065
     Dates: start: 20250613
  5. PIZOTYLINE [Concomitant]
     Active Substance: PIZOTYLINE
     Indication: Ill-defined disorder
     Route: 065
     Dates: start: 20230127
  6. ZOPICLONE [Concomitant]
     Active Substance: ZOPICLONE
     Indication: Ill-defined disorder
     Route: 065
     Dates: start: 20230515
  7. GABAPENTIN [Concomitant]
     Active Substance: GABAPENTIN
     Indication: Ill-defined disorder
     Route: 065
     Dates: start: 20230518
  8. ALLOPURINOL [Concomitant]
     Active Substance: ALLOPURINOL
     Indication: Ill-defined disorder
     Route: 065
     Dates: start: 20230615
  9. BETAHISTINE [Concomitant]
     Active Substance: BETAHISTINE
     Indication: Ill-defined disorder
     Route: 065
     Dates: start: 20230615
  10. MEBEVERINE [Concomitant]
     Active Substance: MEBEVERINE
     Indication: Ill-defined disorder
     Route: 065
     Dates: start: 20230615
  11. LANSOPRAZOLE [Concomitant]
     Active Substance: LANSOPRAZOLE
     Indication: Ill-defined disorder
     Route: 065
     Dates: start: 20230629
  12. MIRTAZAPINE [Concomitant]
     Active Substance: MIRTAZAPINE
     Indication: Ill-defined disorder
     Route: 065
     Dates: start: 20230629
  13. Cyanocominn [Concomitant]
     Indication: Ill-defined disorder
     Route: 065
     Dates: start: 20230706
  14. DULOXETINE [Concomitant]
     Active Substance: DULOXETINE
     Indication: Ill-defined disorder
     Route: 065
     Dates: start: 20230706
  15. FOLIC ACID [Concomitant]
     Active Substance: FOLIC ACID
     Indication: Ill-defined disorder
     Route: 065
     Dates: start: 20230802
  16. BUDESONIDE\FORMOTEROL FUMARATE [Concomitant]
     Active Substance: BUDESONIDE\FORMOTEROL FUMARATE
     Indication: Ill-defined disorder
     Route: 065
     Dates: start: 20231109
  17. 3M CAVILON ANTIFUNGAL [Concomitant]
     Active Substance: MICONAZOLE NITRATE
     Indication: Ill-defined disorder
     Route: 065
     Dates: start: 20240111
  18. ALBUTEROL [Concomitant]
     Active Substance: ALBUTEROL
     Indication: Ill-defined disorder
     Route: 065
     Dates: start: 20240604
  19. SIMVASTATIN [Concomitant]
     Active Substance: SIMVASTATIN
     Indication: Ill-defined disorder
     Route: 065
     Dates: start: 20250407

REACTIONS (4)
  - Nausea [Recovered/Resolved]
  - Malaise [Recovered/Resolved]
  - Dysgeusia [Recovered/Resolved]
  - Swollen tongue [Unknown]

NARRATIVE: CASE EVENT DATE: 20250613
